FAERS Safety Report 16717754 (Version 1)
Quarter: 2019Q3

REPORT INFORMATION
  Report Type: Spontaneous
  Country: FR (occurrence: FR)
  Receive Date: 20190819
  Receipt Date: 20190819
  Transmission Date: 20191005
  Serious: Yes (Hospitalization, Other)
  Sender: FDA-Public Use
  Company Number: FR-009507513-1908FRA005361

PATIENT
  Sex: Male

DRUGS (1)
  1. ISENTRESS [Suspect]
     Active Substance: RALTEGRAVIR POTASSIUM
     Dosage: 400 MILLIGRAM 2 TIMES PER DAY
     Route: 048

REACTIONS (4)
  - Pneumonia legionella [Unknown]
  - Off label use [Unknown]
  - Adverse event [Unknown]
  - Respiratory distress [Unknown]
